FAERS Safety Report 8617082-3 (Version None)
Quarter: 2012Q3

REPORT INFORMATION
  Report Type: 
  Country: None (occurrence: None)
  Receive Date: 20120823
  Receipt Date: 20120816
  Transmission Date: 20120928
  Serious: No
  Sender: FDA-Public Use
  Company Number: US-009507513-1208USA008396

PATIENT

DRUGS (5)
  1. LUMIGAN [Concomitant]
  2. AMILORIDE HYDROCHLORIDE [Concomitant]
  3. AZOPT [Concomitant]
  4. COZAAR [Concomitant]
     Route: 048
  5. ZIOPTAN [Suspect]
     Indication: GLAUCOMA
     Dosage: UNK
     Route: 047
     Dates: start: 20120802, end: 20120816

REACTIONS (1)
  - NASOPHARYNGITIS [None]
